FAERS Safety Report 15550840 (Version 4)
Quarter: 2019Q4

REPORT INFORMATION
  Report Type: Spontaneous
  Country: FR (occurrence: FR)
  Receive Date: 20181025
  Receipt Date: 20191025
  Transmission Date: 20200122
  Serious: Yes (Hospitalization, Other)
  Sender: FDA-Public Use
  Company Number: FR-PFIZER INC-2018422513

PATIENT
  Age: 40 Year
  Sex: Male

DRUGS (9)
  1. EFFEXOR [Suspect]
     Active Substance: VENLAFAXINE HYDROCHLORIDE
     Dosage: 15 MG, UNK
     Route: 065
  2. ABILIFY [Suspect]
     Active Substance: ARIPIPRAZOLE
     Indication: SCHIZOID PERSONALITY DISORDER
     Dosage: 15 MG, DAILY
     Route: 065
     Dates: start: 2003, end: 201804
  3. ABILIFY [Suspect]
     Active Substance: ARIPIPRAZOLE
     Dosage: 1 (UNSPECIFIED UNIT), DAILY (60 TO 80MG DAILY UNKNOWN WAY OF ADMINISTRATION)
     Route: 065
  4. NORSET [Concomitant]
     Active Substance: MIRTAZAPINE
     Indication: DEPRESSION
     Dosage: UNK
     Route: 065
  5. EFFEXOR [Suspect]
     Active Substance: VENLAFAXINE HYDROCHLORIDE
     Dosage: 5 MG, UNK
  6. ABILIFY [Suspect]
     Active Substance: ARIPIPRAZOLE
     Dosage: 15 MG, UNK
     Route: 065
  7. ABILIFY [Suspect]
     Active Substance: ARIPIPRAZOLE
     Dosage: 5 MG, DAILY
     Route: 065
     Dates: start: 201806, end: 201806
  8. ABILIFY [Suspect]
     Active Substance: ARIPIPRAZOLE
     Dosage: 10 MG, DAILY
     Route: 065
     Dates: start: 2003, end: 201803
  9. EFFEXOR [Suspect]
     Active Substance: VENLAFAXINE HYDROCHLORIDE
     Dosage: 10 MG, UNK

REACTIONS (21)
  - Weight increased [Unknown]
  - Thinking abnormal [Recovered/Resolved]
  - Sedation [Recovered/Resolved]
  - Disorientation [Unknown]
  - Withdrawal syndrome [Unknown]
  - Product use in unapproved indication [Unknown]
  - Hypersomnia [Unknown]
  - Rebound effect [Unknown]
  - Incoherent [Unknown]
  - Autism spectrum disorder [Unknown]
  - Impaired driving ability [Unknown]
  - Confusional state [Unknown]
  - Depression [Unknown]
  - Nervousness [Unknown]
  - Cardiac disorder [Unknown]
  - Crying [Recovered/Resolved]
  - Delusion [Unknown]
  - Delirium [Unknown]
  - Drug tolerance decreased [Unknown]
  - Therapy cessation [Unknown]
  - Agitation [Unknown]

NARRATIVE: CASE EVENT DATE: 2003
